FAERS Safety Report 23396469 (Version 2)
Quarter: 2024Q1

REPORT INFORMATION
  Report Type: Report from Study
  Country: JP (occurrence: JP)
  Receive Date: 20240112
  Receipt Date: 20240329
  Transmission Date: 20240409
  Serious: Yes (Death, Life-Threatening, Other)
  Sender: FDA-Public Use
  Company Number: JP-002147023-NVSJ2020JP005123

PATIENT
  Age: 23 Year
  Sex: Male
  Weight: 95 kg

DRUGS (3)
  1. KYMRIAH [Suspect]
     Active Substance: TISAGENLECLEUCEL
     Indication: Acute lymphocytic leukaemia recurrent
     Dosage: FULL DOSE, TOTAL NUMBER OF CELLS ADMINISTERED: 0.9X10^8
     Route: 041
     Dates: start: 20200406, end: 20200406
  2. FLUDARABINE PHOSPHATE [Concomitant]
     Active Substance: FLUDARABINE PHOSPHATE
     Indication: Lymphodepletion
     Dosage: 27 MG/M2
     Route: 065
  3. CYCLOPHOSPHAMIDE [Concomitant]
     Active Substance: CYCLOPHOSPHAMIDE
     Indication: Lymphodepletion
     Dosage: 450 MG/M2
     Route: 065

REACTIONS (10)
  - Acute lymphocytic leukaemia recurrent [Fatal]
  - Malignant neoplasm progression [Fatal]
  - Cardiac failure [Unknown]
  - Platelet count decreased [Recovered/Resolved]
  - White blood cell count decreased [Recovering/Resolving]
  - Hypogammaglobulinaemia [Not Recovered/Not Resolved]
  - Neutrophil count decreased [Unknown]
  - Lymphocyte count decreased [Unknown]
  - Haemoglobin decreased [Unknown]
  - COVID-19 [Recovered/Resolved]

NARRATIVE: CASE EVENT DATE: 20200707
